FAERS Safety Report 16734246 (Version 2)
Quarter: 2020Q3

REPORT INFORMATION
  Report Type: Spontaneous
  Country: CA (occurrence: CA)
  Receive Date: 20190823
  Receipt Date: 20200921
  Transmission Date: 20201102
  Serious: Yes (Other)
  Sender: FDA-Public Use
  Company Number: CA-AUROBINDO-AUR-APL-2019-055307

PATIENT
  Age: 16 Year
  Sex: Female

DRUGS (9)
  1. APO RISPERIDONE [Suspect]
     Active Substance: RISPERIDONE
     Indication: SCHIZOPHRENIA
     Dosage: 1 MILLIGRAM, ONCE A DAY
     Route: 065
  2. RISPERIDONE. [Suspect]
     Active Substance: RISPERIDONE
     Indication: SCHIZOPHRENIA
     Dosage: 1 MILLIGRAM, ONCE A DAY
     Route: 065
  3. RISPERIDONE. [Suspect]
     Active Substance: RISPERIDONE
     Dosage: 2 MILLIGRAM, ONCE A DAY
     Route: 065
  4. APO RISPERIDONE [Suspect]
     Active Substance: RISPERIDONE
     Dosage: 1.5 MILLIGRAM, ONCE A DAY
     Route: 030
  5. RISPERIDONE. [Suspect]
     Active Substance: RISPERIDONE
     Dosage: 1.5 MILLIGRAM, ONCE A DAY
     Route: 030
  6. ABILIFY [Suspect]
     Active Substance: ARIPIPRAZOLE
     Indication: SCHIZOPHRENIA
     Dosage: 25 MG, QD
     Route: 065
  7. APO RISPERIDONE [Suspect]
     Active Substance: RISPERIDONE
     Dosage: 2 MILLIGRAM, ONCE A DAY
     Route: 065
  8. QUETIAPINE FILM?COATED TABLET [Suspect]
     Active Substance: QUETIAPINE
     Indication: SCHIZOPHRENIA
     Dosage: UNK
     Route: 065
  9. ABILIFY [Suspect]
     Active Substance: ARIPIPRAZOLE
     Dosage: 10 MG, QD
     Route: 065

REACTIONS (3)
  - Disease recurrence [Recovered/Resolved]
  - Oculogyric crisis [Recovered/Resolved]
  - Therapeutic response decreased [Recovered/Resolved]
